FAERS Safety Report 5272387-1 (Version None)
Quarter: 2007Q1

REPORT INFORMATION
  Report Type: 
  Country: None (occurrence: None)
  Receive Date: 20070320
  Receipt Date: 20070320
  Transmission Date: 20070707
  Serious: Yes (Hospitalization)
  Sender: FDA-Public Use
  Company Number: None

PATIENT
  Sex: Male
  Weight: 94.8925 kg

DRUGS (1)
  1. PEG INTERFERON ALFA 2A [Suspect]
     Indication: HEPATITIS C
     Dosage: 180 MCG Q7 DAYS CUTANEOUS
     Route: 003
     Dates: start: 20061030, end: 20070211

REACTIONS (12)
  - AFFECTIVE DISORDER [None]
  - ALCOHOLISM [None]
  - ANXIETY [None]
  - DEPRESSED MOOD [None]
  - DEPRESSIVE SYMPTOM [None]
  - DRUG ABUSER [None]
  - FACIAL PAIN [None]
  - IMPAIRED WORK ABILITY [None]
  - NAUSEA [None]
  - SUICIDAL IDEATION [None]
  - TENSION [None]
  - THINKING ABNORMAL [None]
